FAERS Safety Report 9260210 (Version 4)
Quarter: 2013Q3

REPORT INFORMATION
  Report Type: Spontaneous
  Country: US (occurrence: US)
  Receive Date: 20130429
  Receipt Date: 20130909
  Transmission Date: 20140515
  Serious: Yes (Other)
  Sender: FDA-Public Use
  Company Number: US-PFIZER INC-2013131145

PATIENT
  Age: 37 Year
  Sex: Female

DRUGS (1)
  1. ZOLOFT [Suspect]
     Dosage: 75 MG, 1X/DAY (1 1/2 TABLET)

REACTIONS (15)
  - Accident at work [Unknown]
  - Pain [Unknown]
  - Joint injury [Unknown]
  - Thoracic outlet syndrome [Unknown]
  - Neck pain [Unknown]
  - Musculoskeletal pain [Unknown]
  - Hypoaesthesia [Unknown]
  - Cervical radiculopathy [Unknown]
  - Pain in extremity [Unknown]
  - Intervertebral disc annular tear [Unknown]
  - Feeling abnormal [Unknown]
  - Malaise [Unknown]
  - Disturbance in attention [Unknown]
  - Anxiety [Unknown]
  - Mood altered [Unknown]
